FAERS Safety Report 18206504 (Version 3)
Quarter: 2020Q4

REPORT INFORMATION
  Report Type: Spontaneous
  Country: US (occurrence: US)
  Receive Date: 20200828
  Receipt Date: 20201014
  Transmission Date: 20210113
  Serious: No
  Sender: FDA-Public Use
  Company Number: US-BAUSCH-BL-2020-024367

PATIENT
  Sex: Male

DRUGS (1)
  1. IPRATROPIUM BROMIDE NASAL SOLUTION 0.06 PERCENT [Suspect]
     Active Substance: IPRATROPIUM BROMIDE
     Indication: RHINORRHOEA
     Dosage: 3-4 TIMES A DAY
     Route: 065
     Dates: start: 20200814, end: 20200816

REACTIONS (1)
  - Drug ineffective [Unknown]
